FAERS Safety Report 14654723 (Version 2)
Quarter: 2018Q2

REPORT INFORMATION
  Report Type: Spontaneous
  Country: US (occurrence: US)
  Receive Date: 20180319
  Receipt Date: 20180508
  Transmission Date: 20180711
  Serious: No
  Sender: FDA-Public Use
  Company Number: US-CELLTRION INC.-2017US015624

PATIENT

DRUGS (2)
  1. INFLECTRA [Suspect]
     Active Substance: INFLIXIMAB-DYYB
     Dosage: 4 VIALS, EVERY 8 WEEKS
     Route: 065
     Dates: start: 20180310, end: 20180310
  2. INFLECTRA [Suspect]
     Active Substance: INFLIXIMAB-DYYB
     Indication: ANKYLOSING SPONDYLITIS
     Dosage: 4 DF (VIALS), EVERY 8 WEEKS
     Route: 065
     Dates: start: 20180104, end: 20180104

REACTIONS (2)
  - Drug prescribing error [Unknown]
  - Inappropriate schedule of drug administration [Unknown]
